FAERS Safety Report 6549239-X (Version None)
Quarter: 2010Q1

REPORT INFORMATION
  Report Type: 
  Country: None (occurrence: None)
  Receive Date: 20100125
  Receipt Date: 20100112
  Transmission Date: 20100710
  Serious: Yes (Other)
  Sender: FDA-Public Use
  Company Number: US-JNJFOC-20100104315

PATIENT
  Sex: Female
  Weight: 116.58 kg

DRUGS (1)
  1. REMICADE [Suspect]
     Indication: COLITIS ULCERATIVE
     Dosage: 3 INFUSIONS
     Route: 042

REACTIONS (3)
  - PAIN OF SKIN [None]
  - RASH ERYTHEMATOUS [None]
  - WEIGHT INCREASED [None]
